FAERS Safety Report 5711379-2 (Version None)
Quarter: 2008Q2

REPORT INFORMATION
  Report Type: 
  Country: None (occurrence: None)
  Receive Date: 20080418
  Receipt Date: 20080410
  Transmission Date: 20081010
  Serious: No
  Sender: FDA-Public Use
  Company Number: 08H-163-0314135-00

PATIENT
  Age: 55 Year
  Sex: Female
  Weight: 152.8622 kg

DRUGS (12)
  1. PANHEPRIN [Suspect]
     Indication: CENTRAL VENOUS CATHETERISATION
     Dosage: 100 MG UNITS/ML, FLUSH, INTRAVENOUS
     Route: 042
     Dates: start: 20080401, end: 20080401
  2. VANCOMYCIN [Concomitant]
  3. ALBUTEROL [Concomitant]
  4. BUPIVACAINE 0.25% (BUPIVACAINE) [Concomitant]
  5. CLINDAMYCIN HCL [Concomitant]
  6. FENTANYL [Concomitant]
  7. DEXAMETHASONE TAB [Concomitant]
  8. PREDNISONE TAB [Concomitant]
  9. PRIMAXIN [Concomitant]
  10. NORMAL SALINE (SOLDIUM CHLORIDE) [Concomitant]
  11. DILAUDID [Concomitant]
  12. LIDOCAINE [Concomitant]

REACTIONS (6)
  - BLOOD PRESSURE DECREASED [None]
  - COLD SWEAT [None]
  - DEPRESSED LEVEL OF CONSCIOUSNESS [None]
  - DIZZINESS [None]
  - FEELING ABNORMAL [None]
  - HEADACHE [None]
